FAERS Safety Report 19529005 (Version 9)
Quarter: 2022Q2

REPORT INFORMATION
  Report Type: Report from Study
  Country: BR (occurrence: BR)
  Receive Date: 20210713
  Receipt Date: 20220429
  Transmission Date: 20220721
  Serious: Yes (Hospitalization, Disabling, Other)
  Sender: FDA-Public Use
  Company Number: BR-SA-SAC20210708000246

PATIENT
  Age: 48 Year
  Sex: Male
  Weight: 77 kg

DRUGS (5)
  1. ALGLUCOSIDASE ALFA [Suspect]
     Active Substance: ALGLUCOSIDASE ALFA
     Indication: Glycogen storage disease type II
     Dosage: 28 DF, Q15D
     Route: 041
  2. ALGLUCOSIDASE ALFA [Suspect]
     Active Substance: ALGLUCOSIDASE ALFA
     Dosage: 28 DF, QOW
     Route: 041
     Dates: start: 20200417
  3. ALGLUCOSIDASE ALFA [Suspect]
     Active Substance: ALGLUCOSIDASE ALFA
     Dosage: UNK
     Dates: start: 20201101, end: 202011
  4. ALGLUCOSIDASE ALFA [Suspect]
     Active Substance: ALGLUCOSIDASE ALFA
     Dosage: 28 DF, QOW
     Route: 041
     Dates: start: 20201120, end: 202111
  5. ALGLUCOSIDASE ALFA [Suspect]
     Active Substance: ALGLUCOSIDASE ALFA
     Dosage: 28 DF, Q15D
     Route: 041
     Dates: start: 20211202

REACTIONS (17)
  - Pancreatitis [Not Recovered/Not Resolved]
  - Loss of personal independence in daily activities [Unknown]
  - Anxiety [Recovering/Resolving]
  - Memory impairment [Unknown]
  - Condition aggravated [Unknown]
  - Nervousness [Unknown]
  - Gait disturbance [Unknown]
  - Muscular weakness [Unknown]
  - Movement disorder [Unknown]
  - Dyspnoea [Unknown]
  - Fatigue [Unknown]
  - Gallbladder operation [Unknown]
  - Diarrhoea [Recovering/Resolving]
  - Hypersensitivity [Recovered/Resolved]
  - Rhinorrhoea [Recovered/Resolved]
  - Wrong technique in product usage process [Unknown]
  - Inappropriate schedule of product administration [Unknown]

NARRATIVE: CASE EVENT DATE: 20200801
